FAERS Safety Report 11927138 (Version 1)
Quarter: 2016Q1

REPORT INFORMATION
  Report Type: Spontaneous
  Country: US (occurrence: None)
  Receive Date: 20160115
  Receipt Date: 20160115
  Transmission Date: 20160526
  Serious: Yes (Disabling)
  Sender: FDA-Public Use
  Company Number: None

PATIENT
  Age: 42 Year
  Sex: Female
  Weight: 56.7 kg

DRUGS (3)
  1. VITAMIN D [Concomitant]
     Active Substance: CHOLECALCIFEROL
  2. CEFDINIR. [Suspect]
     Active Substance: CEFDINIR
     Indication: TONSILLITIS
     Dosage: 1 CAPSULE, TWICE DAILY, TAKEN BY MOUTH
     Dates: start: 20151229, end: 20160106
  3. CULTURELLE [Concomitant]
     Active Substance: LACTOBACILLUS RHAMNOSUS

REACTIONS (5)
  - Fatigue [None]
  - Abdominal pain [None]
  - Headache [None]
  - Diarrhoea [None]
  - Clostridium difficile infection [None]

NARRATIVE: CASE EVENT DATE: 20160107
